FAERS Safety Report 25968531 (Version 3)
Quarter: 2025Q4

REPORT INFORMATION
  Report Type: Report from Study
  Country: US (occurrence: US)
  Receive Date: 20251028
  Receipt Date: 20251126
  Transmission Date: 20260119
  Serious: No
  Sender: SANDOZ
  Company Number: US-SANDOZ-SDZ2025US079168

PATIENT
  Sex: Male

DRUGS (4)
  1. OMNITROPE [Suspect]
     Active Substance: SOMATROPIN
     Indication: Short stature
     Dosage: 0.6 MG, QD (10 MG/1.5 ML IN CARTRIDGE)
     Route: 058
     Dates: start: 20251020
  2. OMNITROPE [Suspect]
     Active Substance: SOMATROPIN
     Indication: Short stature
     Dosage: 0.6 MG, QD (10 MG/1.5 ML IN CARTRIDGE)
     Route: 058
     Dates: start: 20251020
  3. OMNITROPE [Suspect]
     Active Substance: SOMATROPIN
     Dosage: 0.6 MG, QD, DOSING SIZE (0.8MG)
     Route: 058
  4. OMNITROPE [Suspect]
     Active Substance: SOMATROPIN
     Dosage: 0.6 MG, QD, DOSING SIZE (0.8MG)
     Route: 058

REACTIONS (5)
  - Incorrect dose administered by device [Unknown]
  - Product storage error [Unknown]
  - Product dose omission issue [Unknown]
  - Needle issue [Unknown]
  - Product supply issue [Unknown]
